FAERS Safety Report 6504421-2 (Version None)
Quarter: 2009Q4

REPORT INFORMATION
  Report Type: 
  Country: None (occurrence: None)
  Receive Date: 20091214
  Receipt Date: 20091124
  Transmission Date: 20100525
  Serious: Yes (Other)
  Sender: FDA-Public Use
  Company Number: B0610858A

PATIENT
  Age: 50 Year
  Sex: Female

DRUGS (10)
  1. BUSULPHAN (FORMULATION UNKNOWN) (GENERIC) (BUSULFAN) [Suspect]
     Indication: NEOPLASM MALIGNANT
  2. FLUDARABINE PHOSPHATE [Suspect]
     Indication: NEOPLASM MALIGNANT
  3. MELPHALAN HYDROCHLORIDE [Suspect]
  4. STEM CELL TRANSPLANT [Concomitant]
  5. CYCLOSPORINE [Concomitant]
  6. METHOTREXATE [Concomitant]
  7. TACROLIMUS [Concomitant]
  8. CO-TRIMOXAZOLE [Concomitant]
  9. FLUCONAZOLE [Concomitant]
  10. LEVOFLOXACIN [Concomitant]

REACTIONS (1)
  - THROMBOTIC MICROANGIOPATHY [None]
